FAERS Safety Report 7432898-7 (Version None)
Quarter: 2011Q2

REPORT INFORMATION
  Report Type: 
  Country: None (occurrence: None)
  Receive Date: 20110422
  Receipt Date: 20110418
  Transmission Date: 20111010
  Serious: Yes (Death, Hospitalization)
  Sender: FDA-Public Use
  Company Number: US-SANOFI-AVENTIS-2011SA023661

PATIENT
  Age: 69 Year
  Sex: Male

DRUGS (10)
  1. LEUCOVORIN CALCIUM [Suspect]
     Indication: GASTRIC CANCER
     Route: 041
     Dates: start: 20100902, end: 20100902
  2. FLUOROURACIL [Suspect]
     Route: 040
     Dates: start: 20110119, end: 20110119
  3. OXALIPLATIN [Suspect]
     Route: 041
     Dates: start: 20110119, end: 20110119
  4. LEUCOVORIN CALCIUM [Suspect]
     Route: 041
     Dates: start: 20110119, end: 20110119
  5. FLUOROURACIL [Suspect]
     Route: 041
     Dates: start: 20110119, end: 20110119
  6. BLINDED THERAPY [Suspect]
     Indication: GASTRIC CANCER
     Dosage: DAYS 1-14
     Route: 048
     Dates: start: 20100902, end: 20100902
  7. FLUOROURACIL [Suspect]
     Route: 041
     Dates: start: 20100902, end: 20100902
  8. OXALIPLATIN [Suspect]
     Indication: GASTRIC CANCER
     Route: 041
     Dates: start: 20100902, end: 20100902
  9. BLINDED THERAPY [Suspect]
     Dosage: DAYS 1-14
     Route: 048
     Dates: start: 20110119, end: 20110119
  10. FLUOROURACIL [Suspect]
     Indication: GASTRIC CANCER
     Route: 040
     Dates: start: 20100902, end: 20100902

REACTIONS (3)
  - DEATH [None]
  - NERVOUS SYSTEM DISORDER [None]
  - OESOPHAGITIS [None]
